FAERS Safety Report 10079025 (Version 2)
Quarter: 2014Q2

REPORT INFORMATION
  Report Type: Report from Study
  Country: US (occurrence: US)
  Receive Date: 20140415
  Receipt Date: 20140428
  Transmission Date: 20141212
  Serious: Yes (Hospitalization)
  Sender: FDA-Public Use
  Company Number: US-PFIZER INC-2014102484

PATIENT
  Age: 23 Year
  Sex: Female

DRUGS (3)
  1. DOXEPIN HCL [Suspect]
     Dosage: UNK
     Route: 048
  2. RISPERIDONE [Suspect]
     Dosage: 50 MG, UNK
     Route: 048
  3. LITHIUM [Suspect]
     Dosage: UNK
     Route: 048

REACTIONS (3)
  - Overdose [Recovered/Resolved]
  - Lethargy [Recovered/Resolved]
  - Sinus arrest [Recovered/Resolved]
